FAERS Safety Report 8207640-2 (Version None)
Quarter: 2012Q1

REPORT INFORMATION
  Report Type: 
  Country: None (occurrence: None)
  Receive Date: 20120314
  Receipt Date: 20120314
  Transmission Date: 20120608
  Serious: Yes (Death, Life-Threatening, Hospitalization)
  Sender: FDA-Public Use
  Company Number: None

PATIENT
  Age: 56 Year
  Sex: Female
  Weight: 83 kg

DRUGS (2)
  1. CEFEPIME [Suspect]
     Indication: EVIDENCE BASED TREATMENT
     Dosage: 1 GRAM
     Route: 042
     Dates: start: 20111229, end: 20111229
  2. CEFEPIME [Suspect]
     Indication: INFECTION
     Dosage: 1 GRAM
     Route: 042
     Dates: start: 20111229, end: 20111229

REACTIONS (7)
  - CARDIAC ARREST [None]
  - UNRESPONSIVE TO STIMULI [None]
  - BRADYCARDIA [None]
  - PULSELESS ELECTRICAL ACTIVITY [None]
  - GRAND MAL CONVULSION [None]
  - RESPIRATORY ARREST [None]
  - HYPOXIC-ISCHAEMIC ENCEPHALOPATHY [None]
